FAERS Safety Report 5869514-1 (Version None)
Quarter: 2008Q3

REPORT INFORMATION
  Report Type: 
  Country: None (occurrence: None)
  Receive Date: 20080904
  Receipt Date: 20080827
  Transmission Date: 20090109
  Serious: Yes (Disabling)
  Sender: FDA-Public Use
  Company Number: DE-SOLVAY-00308003212

PATIENT
  Age: 1018 Month
  Sex: Male
  Weight: 63 kg

DRUGS (1)
  1. CREON [Suspect]
     Indication: DRUG USE FOR UNKNOWN INDICATION
     Dosage: DAILY DOSE: 3 DOSAGE FORM
     Route: 065
     Dates: start: 20080403

REACTIONS (2)
  - DIARRHOEA [None]
  - WEIGHT DECREASED [None]
